FAERS Safety Report 19052555 (Version 1)
Quarter: 2021Q1

REPORT INFORMATION
  Report Type: Spontaneous
  Country: CN (occurrence: CN)
  Receive Date: 20210324
  Receipt Date: 20210324
  Transmission Date: 20210420
  Serious: Yes (Other)
  Sender: FDA-Public Use
  Company Number: CN-ROCHE-2791243

PATIENT
  Age: 47 Year
  Sex: Male

DRUGS (50)
  1. RITUXIMAB. [Suspect]
     Active Substance: RITUXIMAB
     Route: 065
     Dates: start: 20180715, end: 20180715
  2. RITUXIMAB. [Suspect]
     Active Substance: RITUXIMAB
     Route: 065
     Dates: start: 20180913
  3. CYCLOPHOSPHAMIDE. [Concomitant]
     Active Substance: CYCLOPHOSPHAMIDE
     Indication: DIFFUSE LARGE B-CELL LYMPHOMA
     Dates: start: 20180715
  4. VINDESINE [Concomitant]
     Active Substance: VINDESINE
     Indication: DIFFUSE LARGE B-CELL LYMPHOMA
     Dates: start: 20180715
  5. TRIMETHOPRIM SULFAMETHOXAZOLE [Concomitant]
     Active Substance: SULFAMETHOXAZOLE\TRIMETHOPRIM
  6. RITUXIMAB. [Suspect]
     Active Substance: RITUXIMAB
     Route: 065
     Dates: start: 20181203
  7. RITUXIMAB. [Suspect]
     Active Substance: RITUXIMAB
     Route: 065
  8. DEXAMETHASONE. [Concomitant]
     Active Substance: DEXAMETHASONE
     Dates: start: 20180711
  9. DEXAMETHASONE. [Concomitant]
     Active Substance: DEXAMETHASONE
     Dates: start: 20180712
  10. DEXAMETHASONE. [Concomitant]
     Active Substance: DEXAMETHASONE
     Dates: start: 20180714
  11. CYCLOPHOSPHAMIDE. [Concomitant]
     Active Substance: CYCLOPHOSPHAMIDE
     Dates: start: 20180913
  12. DOXORUBICIN [Concomitant]
     Active Substance: DOXORUBICIN
     Dates: start: 20181104
  13. VINCRISTINE [Concomitant]
     Active Substance: VINCRISTINE
     Indication: DIFFUSE LARGE B-CELL LYMPHOMA
     Dates: start: 20180802
  14. VINCRISTINE [Concomitant]
     Active Substance: VINCRISTINE
     Dates: start: 20180822
  15. SULBACTAM [Concomitant]
     Active Substance: SULBACTAM
  16. DEXAMETHASONE. [Concomitant]
     Active Substance: DEXAMETHASONE
     Dates: start: 20180913
  17. VINDESINE [Concomitant]
     Active Substance: VINDESINE
     Dates: start: 20181104
  18. MELPHALAN. [Concomitant]
     Active Substance: MELPHALAN
     Indication: DIFFUSE LARGE B-CELL LYMPHOMA
     Dates: start: 20181203
  19. RITUXIMAB. [Suspect]
     Active Substance: RITUXIMAB
     Route: 065
     Dates: start: 20180802
  20. RITUXIMAB. [Suspect]
     Active Substance: RITUXIMAB
     Route: 065
     Dates: start: 20180822
  21. CYCLOPHOSPHAMIDE. [Concomitant]
     Active Substance: CYCLOPHOSPHAMIDE
     Dates: start: 20181104
  22. PREDNISONE. [Concomitant]
     Active Substance: PREDNISONE
     Indication: DIFFUSE LARGE B-CELL LYMPHOMA
     Dates: start: 20180715, end: 20190719
  23. VINCRISTINE [Concomitant]
     Active Substance: VINCRISTINE
     Dates: start: 20180913
  24. GANCICLOVIR. [Concomitant]
     Active Substance: GANCICLOVIR
  25. AZITHROMYCIN ANHYDROUS. [Concomitant]
     Active Substance: AZITHROMYCIN ANHYDROUS
  26. DOXORUBICIN [Concomitant]
     Active Substance: DOXORUBICIN
     Indication: DIFFUSE LARGE B-CELL LYMPHOMA
     Dates: start: 20180802
  27. VINCRISTINE [Concomitant]
     Active Substance: VINCRISTINE
     Dates: start: 20181104
  28. CASPOFUNGIN [Concomitant]
     Active Substance: CASPOFUNGIN
  29. PIPERACILLIN. [Concomitant]
     Active Substance: PIPERACILLIN SODIUM
  30. INDOMETACIN [Concomitant]
     Active Substance: INDOMETHACIN
     Dates: start: 20180711
  31. CYCLOPHOSPHAMIDE. [Concomitant]
     Active Substance: CYCLOPHOSPHAMIDE
     Dates: start: 20180802
  32. ETOPOSIDE. [Concomitant]
     Active Substance: ETOPOSIDE
     Dates: start: 20181104
  33. CYTARABINE. [Concomitant]
     Active Substance: CYTARABINE
     Indication: DIFFUSE LARGE B-CELL LYMPHOMA
     Dates: start: 20181203
  34. FOSCARNET SODIUM. [Concomitant]
     Active Substance: FOSCARNET SODIUM
  35. INDOMETACIN [Concomitant]
     Active Substance: INDOMETHACIN
     Indication: DIFFUSE LARGE B-CELL LYMPHOMA
     Dates: start: 20180709
  36. DEXAMETHASONE. [Concomitant]
     Active Substance: DEXAMETHASONE
     Indication: DIFFUSE LARGE B-CELL LYMPHOMA
     Dates: start: 20180710
  37. DEXAMETHASONE. [Concomitant]
     Active Substance: DEXAMETHASONE
     Dates: start: 20180802
  38. DEXAMETHASONE. [Concomitant]
     Active Substance: DEXAMETHASONE
     Dates: start: 20181104
  39. DEXAMETHASONE. [Concomitant]
     Active Substance: DEXAMETHASONE
     Dates: start: 20180822
  40. CYCLOPHOSPHAMIDE. [Concomitant]
     Active Substance: CYCLOPHOSPHAMIDE
     Dates: start: 20180822
  41. CARMUSTINE. [Concomitant]
     Active Substance: CARMUSTINE
     Indication: DIFFUSE LARGE B-CELL LYMPHOMA
     Dates: start: 20181203
  42. LENALIDOMIDE [Concomitant]
     Active Substance: LENALIDOMIDE
     Indication: DIFFUSE LARGE B-CELL LYMPHOMA
  43. DOXORUBICIN [Concomitant]
     Active Substance: DOXORUBICIN
     Dates: start: 20180822
  44. DOXORUBICIN [Concomitant]
     Active Substance: DOXORUBICIN
     Dates: start: 20180913
  45. ISONIAZID. [Concomitant]
     Active Substance: ISONIAZID
  46. RITUXIMAB. [Suspect]
     Active Substance: RITUXIMAB
     Indication: DIFFUSE LARGE B-CELL LYMPHOMA
     Route: 065
     Dates: start: 20180714
  47. DEXAMETHASONE. [Concomitant]
     Active Substance: DEXAMETHASONE
     Dates: start: 20180713
  48. VINDESINE [Concomitant]
     Active Substance: VINDESINE
     Dates: start: 20180802
  49. ETOPOSIDE. [Concomitant]
     Active Substance: ETOPOSIDE
     Indication: DIFFUSE LARGE B-CELL LYMPHOMA
     Dates: start: 20180802
  50. ETOPOSIDE. [Concomitant]
     Active Substance: ETOPOSIDE
     Dates: start: 20181203

REACTIONS (4)
  - Hypoxia [Unknown]
  - Asthma [Unknown]
  - Asphyxia [Unknown]
  - Pyrexia [Unknown]
